FAERS Safety Report 18209661 (Version 3)
Quarter: 2020Q3

REPORT INFORMATION
  Report Type: Report from Study
  Country: GB (occurrence: GB)
  Receive Date: 20200828
  Receipt Date: 20200916
  Transmission Date: 20201104
  Serious: Yes (Hospitalization)
  Sender: FDA-Public Use
  Company Number: GB-ASTRAZENECA-2020SF09474

PATIENT
  Age: 87 Year
  Sex: Female
  Weight: 64.2 kg

DRUGS (14)
  1. FULVESTRANT. [Suspect]
     Active Substance: FULVESTRANT
     Indication: BREAST CANCER
     Dosage: 500 MG, CYCLICAL
     Route: 030
     Dates: start: 20181116
  2. LEROCICLIB. [Suspect]
     Active Substance: LEROCICLIB
     Indication: BREAST CANCER
     Route: 048
     Dates: start: 20181119, end: 20181123
  3. LEROCICLIB. [Suspect]
     Active Substance: LEROCICLIB
     Indication: BREAST CANCER
     Route: 048
     Dates: start: 20181123, end: 20181223
  4. LEROCICLIB. [Suspect]
     Active Substance: LEROCICLIB
     Indication: BREAST CANCER
     Route: 048
     Dates: start: 20200713, end: 20200727
  5. LEROCICLIB. [Suspect]
     Active Substance: LEROCICLIB
     Indication: BREAST CANCER
     Route: 048
     Dates: start: 20191016, end: 20200330
  6. LEROCICLIB. [Suspect]
     Active Substance: LEROCICLIB
     Indication: BREAST CANCER
     Route: 048
     Dates: start: 20200406, end: 20200629
  7. LEROCICLIB. [Suspect]
     Active Substance: LEROCICLIB
     Indication: BREAST CANCER
     Route: 048
     Dates: start: 20200803
  8. LOPERIAMIDE [Concomitant]
     Indication: DIARRHOEA
     Dosage: 2.0MG AS REQUIRED
     Route: 048
     Dates: start: 20181116
  9. LEROCICLIB. [Suspect]
     Active Substance: LEROCICLIB
     Indication: BREAST CANCER
     Route: 048
     Dates: start: 20181116, end: 20181116
  10. LEROCICLIB. [Suspect]
     Active Substance: LEROCICLIB
     Indication: BREAST CANCER
     Route: 048
     Dates: start: 20190104, end: 20191006
  11. OMEPRAZOLE. [Concomitant]
     Active Substance: OMEPRAZOLE
     Indication: ABDOMINAL PAIN UPPER
     Route: 048
     Dates: start: 20190129
  12. FLUDROCRTISONE ACETATE [Concomitant]
     Indication: BLOOD PRESSURE MEASUREMENT
     Route: 048
     Dates: start: 20191115
  13. PIVMECILLINAM [Concomitant]
     Active Substance: AMDINOCILLIN PIVOXIL
     Indication: URINARY TRACT INFECTION
     Route: 048
     Dates: start: 20200725
  14. LUCENTIS [Concomitant]
     Active Substance: RANIBIZUMAB
     Indication: NEOVASCULAR AGE-RELATED MACULAR DEGENERATION
     Dosage: AS REQUIRED
     Route: 031
     Dates: start: 2016

REACTIONS (1)
  - Sciatic nerve injury [Recovered/Resolved with Sequelae]

NARRATIVE: CASE EVENT DATE: 20200824
